FAERS Safety Report 21380114 (Version 1)
Quarter: 2022Q3

REPORT INFORMATION
  Report Type: Spontaneous
  Country: US (occurrence: None)
  Receive Date: 20220923
  Receipt Date: 20220923
  Transmission Date: 20221026
  Serious: Yes (Hospitalization)
  Sender: FDA-Public Use
  Company Number: None

PATIENT
  Age: 72 Year
  Sex: Male

DRUGS (1)
  1. LISINOPRIL [Suspect]
     Active Substance: LISINOPRIL
     Indication: Hypertension
     Dosage: OTHER QUANTITY : 1/2;?FREQUENCY : DAILY;?
     Route: 048
     Dates: start: 20220121, end: 20220727

REACTIONS (5)
  - Syncope [None]
  - Hypotension [None]
  - Acute kidney injury [None]
  - Dehydration [None]
  - Drug intolerance [None]

NARRATIVE: CASE EVENT DATE: 20220729
